FAERS Safety Report 9350647 (Version 1)
Quarter: 2013Q2

REPORT INFORMATION
  Report Type: Spontaneous
  Country: FR (occurrence: FR)
  Receive Date: 20130617
  Receipt Date: 20130617
  Transmission Date: 20140414
  Serious: Yes (Hospitalization)
  Sender: FDA-Public Use
  Company Number: FR-UCBSA-088145

PATIENT
  Age: 51 Year
  Sex: Male

DRUGS (14)
  1. NEUPRO [Suspect]
     Indication: PARKINSON^S DISEASE
     Dosage: 4MG DAILY
     Route: 062
     Dates: start: 20130304, end: 201303
  2. NEUPRO [Suspect]
     Indication: PARKINSON^S DISEASE
     Dosage: 6MG DAILY
     Route: 062
     Dates: start: 201303, end: 20130324
  3. NEUPRO [Suspect]
     Indication: PARKINSON^S DISEASE
     Dosage: 8MG DAILY
     Route: 062
     Dates: start: 20130325, end: 20130510
  4. STALEVO [Suspect]
     Dosage: 150MG/37.5MG/200MG, 1 TABLETS 5 TIMES DAILY
     Route: 048
  5. STALEVO [Suspect]
     Indication: PARKINSON^S DISEASE
     Dosage: 150MG/37.5MG/200MG, 1 TABLETS 5 TIMES DAILY
     Route: 048
  6. SINEMET [Suspect]
     Indication: PARKINSON^S DISEASE
     Dosage: 200/50MG EXTENDED RELEASE 1 TABLET AT 10PM
     Route: 048
  7. MANTADIX [Suspect]
     Indication: PARKINSON^S DISEASE
     Route: 048
  8. MODOPAR [Suspect]
     Indication: PARKINSON^S DISEASE
     Dosage: 100MG/25MG, 1 TABLET DAILY
     Route: 048
  9. AZILECT [Suspect]
     Indication: PARKINSON^S DISEASE
     Dosage: 1MG DAILY
     Route: 048
  10. DEPAKOTE [Concomitant]
  11. ZOLPIDEM ARROW [Concomitant]
     Dosage: 10MG DAILY
  12. LYSANXIA [Concomitant]
     Dosage: 10MG DAILY
  13. TAMSULOSINE [Concomitant]
     Dosage: 0.4 MG DAILY
  14. INEXIUM [Concomitant]
     Dosage: 20MG DAILY

REACTIONS (1)
  - Dystonia [Recovered/Resolved]
